FAERS Safety Report 25922979 (Version 1)
Quarter: 2025Q4

REPORT INFORMATION
  Report Type: Report from Study
  Country: US (occurrence: US)
  Receive Date: 20251015
  Receipt Date: 20251015
  Transmission Date: 20260117
  Serious: Yes (Other)
  Sender: ABBVIE
  Company Number: US-ABBVIE-6462894

PATIENT
  Age: 79 Year
  Sex: Male

DRUGS (1)
  1. RINVOQ [Suspect]
     Active Substance: UPADACITINIB
     Indication: Rheumatoid arthritis
     Route: 048
     Dates: start: 20150407

REACTIONS (9)
  - Spinal operation [Unknown]
  - Back pain [Unknown]
  - Spinal pain [Unknown]
  - Nervous system disorder [Unknown]
  - Gait disturbance [Unknown]
  - Spinal deformity [Unknown]
  - Spinal stenosis [Unknown]
  - Musculoskeletal stiffness [Unknown]
  - Pain [Unknown]

NARRATIVE: CASE EVENT DATE: 20250301
